FAERS Safety Report 9338022 (Version 2)
Quarter: 2013Q2

REPORT INFORMATION
  Report Type: Spontaneous
  Country: JP (occurrence: JP)
  Receive Date: 20130610
  Receipt Date: 20130618
  Transmission Date: 20140414
  Serious: Yes (Death, Other)
  Sender: FDA-Public Use
  Company Number: JP-AMGEN-JPNSP2013036970

PATIENT
  Age: 66 Year
  Sex: Female
  Weight: 41.1 kg

DRUGS (12)
  1. ENBREL [Suspect]
     Indication: RHEUMATOID ARTHRITIS
     Dosage: 50 MG, WEEKLY
     Route: 058
     Dates: start: 20090710
  2. POLARAMINE [Concomitant]
     Dosage: 2 MG, 1X/DAY
     Route: 048
  3. ALOSENN                            /00476901/ [Concomitant]
     Dosage: 1 G, 1X/DAY
     Route: 048
  4. ALLEGRA [Concomitant]
     Dosage: 60 MG, 1X/DAY
     Route: 048
  5. FOSRENOL [Concomitant]
     Dosage: 250 MG, 3X/DAY
     Route: 048
  6. ALFAROL [Concomitant]
     Dosage: 0.25 UG, 1X/DAY
     Route: 048
  7. KAYEXALATE [Concomitant]
     Dosage: 2.5 TO 3.27 (UNIT UNKNOWN), 1X/DAY
     Route: 048
  8. CALCIUM CARBONATE [Concomitant]
     Dosage: 1000 MG, 3X/DAY
     Route: 048
  9. AMLODIN [Concomitant]
     Dosage: 5 MG, 1X/DAY
     Route: 048
  10. FOSAMAC [Concomitant]
     Dosage: 35 MG, 1X/DAY
     Route: 048
  11. GASTER D [Concomitant]
     Dosage: 10 MG, 1X/DAY
     Route: 048
  12. ANPLAG [Concomitant]
     Dosage: 100 MG, 1X/DAY
     Route: 048

REACTIONS (7)
  - Postoperative respiratory distress [Unknown]
  - Immunosuppression [Unknown]
  - General physical health deterioration [Unknown]
  - Arthralgia [Unknown]
  - Staphylococcal sepsis [Fatal]
  - Septic shock [Fatal]
  - Arthritis infective [Unknown]
